FAERS Safety Report 5717243-7 (Version None)
Quarter: 2008Q2

REPORT INFORMATION
  Report Type: 
  Country: None (occurrence: None)
  Receive Date: 20080423
  Receipt Date: 20080416
  Transmission Date: 20081010
  Serious: Yes (Hospitalization, Other)
  Sender: FDA-Public Use
  Company Number: 2008SP007177

PATIENT
  Age: 47 Year
  Sex: Female

DRUGS (2)
  1. PEG-INTRON [Suspect]
     Indication: HEPATITIS C
     Dosage: SC
     Route: 058
     Dates: start: 20071029
  2. RIBAPAK [Suspect]
     Indication: HEPATITIS C
     Dates: start: 20071029

REACTIONS (2)
  - DYSURIA [None]
  - URETERIC OBSTRUCTION [None]
